FAERS Safety Report 4494410-4 (Version None)
Quarter: 2004Q4

REPORT INFORMATION
  Report Type: 
  Country: None (occurrence: None)
  Receive Date: 20041102
  Receipt Date: 20041018
  Transmission Date: 20050328
  Serious: Yes (Hospitalization)
  Sender: FDA-Public Use
  Company Number: 239622

PATIENT
  Age: 92 Year
  Sex: Female
  Weight: 70 kg

DRUGS (4)
  1. NOVONORM (REPAGLINIDE) TABLET, 1.0MG [Suspect]
     Indication: DIABETES MELLITUS NON-INSULIN-DEPENDENT
     Dosage: 0.5 MG, QD, PER ORAL
     Route: 048
     Dates: end: 20040806
  2. FALITHROM (PHENPROCOUMON) [Concomitant]
  3. SPIRONOLACTONE [Concomitant]
  4. FURESIS COMP (FUROSEMIDE, TRIAMTERENE) [Concomitant]

REACTIONS (3)
  - DRUG INTERACTION [None]
  - GASTRIC ULCER [None]
  - ULCER HAEMORRHAGE [None]
